FAERS Safety Report 9498159 (Version 1)
Quarter: 2013Q3

REPORT INFORMATION
  Report Type: Spontaneous
  Country: US (occurrence: US)
  Receive Date: 20130904
  Receipt Date: 20130904
  Transmission Date: 20140515
  Serious: No
  Sender: FDA-Public Use
  Company Number: US-TEVA-428255USA

PATIENT
  Age: 55 Year
  Sex: Female
  Weight: 70.37 kg

DRUGS (1)
  1. PROAIR HFA [Suspect]
     Indication: BRONCHITIS
     Dates: start: 20130816, end: 20130821

REACTIONS (4)
  - Throat irritation [Not Recovered/Not Resolved]
  - Ocular hyperaemia [Recovered/Resolved]
  - Chest discomfort [Not Recovered/Not Resolved]
  - Dehydration [Unknown]
